FAERS Safety Report 13012330 (Version 13)
Quarter: 2017Q2

REPORT INFORMATION
  Report Type: Spontaneous
  Country: US (occurrence: US)
  Receive Date: 20161209
  Receipt Date: 20170427
  Transmission Date: 20170830
  Serious: Yes (Death, Hospitalization, Other)
  Sender: FDA-Public Use
  Company Number: US-PFIZER INC-2016554904

PATIENT
  Age: 80 Year
  Sex: Male
  Weight: 110 kg

DRUGS (19)
  1. FLUTICORT [Concomitant]
     Indication: HYPOTENSION
     Dosage: UNK, 2X/DAY
  2. LASIX [Concomitant]
     Active Substance: FUROSEMIDE
     Indication: PERIPHERAL SWELLING
  3. SANDOSTATIN [Concomitant]
     Active Substance: OCTREOTIDE ACETATE
     Dosage: UNK
  4. SUTENT [Suspect]
     Active Substance: SUNITINIB MALATE
     Dosage: 50 MG, CYCLIC (28 DAYS ON/14 DAYS OFF)
     Dates: start: 20170104, end: 20170216
  5. SUTENT [Suspect]
     Active Substance: SUNITINIB MALATE
     Dosage: 50 MG, CYCLIC (2 WEEKS ON/1 WEEK OFF)
     Dates: start: 20170303, end: 20170315
  6. PREDNISONE. [Concomitant]
     Active Substance: PREDNISONE
     Indication: POLYMYALGIA RHEUMATICA
     Dosage: 15 MG, UNK
  7. PRADAXA [Concomitant]
     Active Substance: DABIGATRAN ETEXILATE MESYLATE
     Indication: ANTICOAGULANT THERAPY
     Dosage: 75 MG, 2X/DAY
     Route: 048
     Dates: start: 20170110
  8. CALCIUM [Concomitant]
     Active Substance: CALCIUM
     Dosage: UNK
  9. ANORO ELLIPTA [Concomitant]
     Active Substance: UMECLIDINIUM BROMIDE\VILANTEROL TRIFENATATE
     Dosage: UNK
     Route: 055
  10. LASIX [Concomitant]
     Active Substance: FUROSEMIDE
     Indication: JOINT SWELLING
     Dosage: UNK, AS NEEDED
  11. SUTENT [Suspect]
     Active Substance: SUNITINIB MALATE
     Indication: NEUROENDOCRINE TUMOUR
     Dosage: 50 MG, CYCLIC (28 DAYS ON/14 DAYS OFF)
     Route: 048
     Dates: start: 20161122, end: 20161215
  12. SUTENT [Suspect]
     Active Substance: SUNITINIB MALATE
     Dosage: 50 MG, CYCLIC (2 WEEKS ON/1 WEEK OFF)
     Dates: end: 20170329
  13. VITAMIN D [Concomitant]
     Active Substance: CHOLECALCIFEROL
     Dosage: UNK
  14. OSTEO BI-FLEX [Concomitant]
     Active Substance: CHONDROITIN SULFATE A\GLUCOSAMINE
     Dosage: UNK
  15. MAGNESIUM OXIDE. [Concomitant]
     Active Substance: MAGNESIUM OXIDE
     Dosage: UNK
  16. HYDROCODONE BITARTRATE AND ACETAMINOPHEN [Concomitant]
     Active Substance: ACETAMINOPHEN\HYDROCODONE BITARTRATE
     Dosage: UNK
  17. STOOL SOFTENER (DOCUSATE) [Concomitant]
     Active Substance: DOCUSATE
     Dosage: UNK
  18. LIPITOR [Concomitant]
     Active Substance: ATORVASTATIN CALCIUM
     Dosage: UNK
  19. VITAMIN C [Concomitant]
     Active Substance: ASCORBIC ACID
     Dosage: UNK

REACTIONS (36)
  - Dyspnoea [Unknown]
  - Asthenia [Unknown]
  - Weight decreased [Not Recovered/Not Resolved]
  - Limb discomfort [Unknown]
  - Depression [Unknown]
  - Death [Fatal]
  - Nausea [Unknown]
  - Myocardial necrosis marker increased [Recovered/Resolved]
  - Peripheral swelling [Recovering/Resolving]
  - Eructation [Unknown]
  - Tremor [Unknown]
  - Oral disorder [Unknown]
  - Malaise [Recovering/Resolving]
  - Diarrhoea [Recovering/Resolving]
  - Viral upper respiratory tract infection [Unknown]
  - Feeling cold [Unknown]
  - Decreased appetite [Not Recovered/Not Resolved]
  - Blister [Not Recovered/Not Resolved]
  - Rash [Unknown]
  - Hot flush [Not Recovered/Not Resolved]
  - Decubitus ulcer [Unknown]
  - Fall [Unknown]
  - Blood potassium abnormal [Unknown]
  - Blood glucose fluctuation [Unknown]
  - Hernia [Unknown]
  - Fatigue [Not Recovered/Not Resolved]
  - Anaemia [Unknown]
  - Serum serotonin increased [Unknown]
  - Faeces discoloured [Unknown]
  - Muscular weakness [Unknown]
  - Skin reaction [Unknown]
  - Body temperature decreased [Unknown]
  - Confusional state [Unknown]
  - Hypersomnia [Unknown]
  - Blood pressure increased [Unknown]
  - Erythema [Not Recovered/Not Resolved]

NARRATIVE: CASE EVENT DATE: 20161210
